FAERS Safety Report 4911921-5 (Version None)
Quarter: 2006Q1

REPORT INFORMATION
  Report Type: 
  Country: None (occurrence: None)
  Receive Date: 20060213
  Receipt Date: 20060213
  Transmission Date: 20060701
  Serious: Yes (Death)
  Sender: FDA-Public Use
  Company Number: None

PATIENT
  Age: 58 Year
  Sex: Male
  Weight: 78 kg

DRUGS (7)
  1. PACLITAXEL [Suspect]
     Indication: CHEMOTHERAPY
     Dosage: 200 MG
     Dates: start: 20060123
  2. PACLITAXEL [Suspect]
     Indication: PALLIATIVE CARE
     Dosage: 200 MG
     Dates: start: 20060123
  3. PACLITAXEL [Suspect]
     Indication: RENAL CELL CARCINOMA STAGE UNSPECIFIED
     Dosage: 200 MG
     Dates: start: 20060123
  4. SOLU-MEDROL [Concomitant]
  5. BENADRYL [Concomitant]
  6. ONDANSETRON [Concomitant]
  7. MORPHINE [Concomitant]

REACTIONS (5)
  - CYANOSIS [None]
  - FLUSHING [None]
  - INFUSION RELATED REACTION [None]
  - LOSS OF CONSCIOUSNESS [None]
  - PULSE ABSENT [None]
